FAERS Safety Report 13749897 (Version 1)
Quarter: 2017Q3

REPORT INFORMATION
  Report Type: Spontaneous
  Country: US (occurrence: US)
  Receive Date: 20170713
  Receipt Date: 20170713
  Transmission Date: 20171127
  Serious: No
  Sender: FDA-Public Use
  Company Number: US-ASTELLAS-2016US042336

PATIENT
  Sex: Female

DRUGS (1)
  1. MYRBETRIQ [Suspect]
     Active Substance: MIRABEGRON
     Indication: MICTURITION URGENCY
     Dosage: UNK, OTHER (TOOK ONCE)
     Route: 065
     Dates: start: 201610, end: 201610

REACTIONS (3)
  - Dyspepsia [Recovered/Resolved]
  - Treatment noncompliance [Unknown]
  - Abdominal discomfort [Recovered/Resolved]
